FAERS Safety Report 9039498 (Version 1)
Quarter: 2013Q1

REPORT INFORMATION
  Report Type: Spontaneous
  Country: US (occurrence: US)
  Receive Date: 20130129
  Receipt Date: 20130129
  Transmission Date: 20140127
  Serious: Yes (Other)
  Sender: FDA-Public Use
  Company Number: US-009507513-1301USA003780

PATIENT
  Sex: Female

DRUGS (11)
  1. MONTELUKAST SODIUM [Suspect]
  2. NEURONTIN [Concomitant]
  3. BUPROPION HYDROCHLORIDE [Concomitant]
  4. CITALOPRAM [Suspect]
  5. DULOXETINE HYDROCHLORIDE [Suspect]
  6. INTERFERON (UNSPECIFIED) [Suspect]
  7. EFFEXOR [Suspect]
     Dosage: UNKNOWN
  8. EFFEXOR [Suspect]
     Dosage: UNKNOWN
  9. EFFEXOR [Suspect]
     Dosage: UNKNOWN
  10. EFFEXOR [Suspect]
     Dosage: UNKNOWN
  11. EFFEXOR [Suspect]
     Dosage: UNKNOWN

REACTIONS (10)
  - Pruritus [Unknown]
  - Palpitations [Unknown]
  - Pain [Unknown]
  - Nausea [Unknown]
  - Musculoskeletal stiffness [Unknown]
  - Musculoskeletal pain [Unknown]
  - Hyperhidrosis [Unknown]
  - Depressed mood [Unknown]
  - Cardiac arrest [Unknown]
  - Abdominal pain upper [Unknown]
